FAERS Safety Report 5688641-5 (Version None)
Quarter: 2008Q1

REPORT INFORMATION
  Report Type: 
  Country: None (occurrence: None)
  Receive Date: 20080331
  Receipt Date: 20080325
  Transmission Date: 20080703
  Serious: Yes (Other)
  Sender: FDA-Public Use
  Company Number: PHRM2008FR01125

PATIENT
  Sex: Male

DRUGS (1)
  1. EXFORGE [Suspect]
     Indication: HYPERTENSION
     Route: 048

REACTIONS (3)
  - BRAIN OEDEMA [None]
  - GENERALISED OEDEMA [None]
  - GYNAECOMASTIA [None]
